FAERS Safety Report 5338798-0 (Version None)
Quarter: 2007Q2

REPORT INFORMATION
  Report Type: 
  Country: None (occurrence: None)
  Receive Date: 20070328
  Receipt Date: 20060919
  Transmission Date: 20071010
  Serious: Yes (Other)
  Sender: FDA-Public Use
  Company Number: K200601196

PATIENT
  Age: 69 Year
  Sex: Male
  Weight: 77.1 kg

DRUGS (6)
  1. ALTACE [Suspect]
     Indication: HYPERTENSION
     Dosage: 10 MG, QD, ORAL
     Route: 048
     Dates: start: 20030101
  2. CRESTOR /NET/ (ROSUVASTATIN CALCIUM), 20 MG [Concomitant]
  3. HYDROCHLOROTHIAZIDE (HYDROCHLOROTHIAZIDE), 25 MG [Concomitant]
  4. ASA (ACETYLSALICYLIC ACID), 81 MG [Concomitant]
  5. MVI (VITAMINS NOS) [Concomitant]
  6. ASCORBIC ACID [Concomitant]

REACTIONS (1)
  - HEARING IMPAIRED [None]
